FAERS Safety Report 9227979 (Version 10)
Quarter: 2013Q2

REPORT INFORMATION
  Report Type: Report from Study
  Country: CA (occurrence: CA)
  Receive Date: 20130412
  Receipt Date: 20130605
  Transmission Date: 20140414
  Serious: Yes (Other)
  Sender: FDA-Public Use
  Company Number: CA-ROCHE-1202749

PATIENT
  Age: 51 Year
  Sex: Male
  Weight: 78.5 kg

DRUGS (13)
  1. XELODA [Suspect]
     Indication: CHOLANGIOCARCINOMA
     Route: 048
     Dates: start: 201206, end: 201212
  2. XELODA [Suspect]
     Indication: OFF LABEL USE
  3. TARCEVA [Suspect]
     Indication: CHOLANGIOCARCINOMA
     Route: 048
     Dates: start: 201206, end: 201212
  4. TARCEVA [Suspect]
     Route: 065
     Dates: start: 20130401, end: 20130521
  5. AVASTIN [Suspect]
     Indication: CHOLANGIOCARCINOMA
     Route: 042
     Dates: start: 20130404, end: 20130516
  6. HYDROMORPHONE [Suspect]
     Indication: PAIN
     Route: 065
     Dates: start: 201303, end: 201303
  7. CELEXA [Concomitant]
  8. PROCHLORPERAZINE [Concomitant]
  9. PROCHLORPERAZINE [Concomitant]
     Route: 065
     Dates: start: 2001
  10. ONDANSETRON [Concomitant]
  11. FENTANYL [Concomitant]
     Indication: PAIN
     Route: 058
  12. ZOFRAN [Concomitant]
     Indication: NAUSEA
     Route: 065
  13. SENOKOT-S [Concomitant]
     Indication: CONSTIPATION
     Route: 065

REACTIONS (13)
  - Drug effect decreased [Unknown]
  - Drug ineffective [Unknown]
  - Disease progression [Unknown]
  - Pulmonary oedema [Not Recovered/Not Resolved]
  - Malaise [Unknown]
  - Cough [Unknown]
  - Abdominal pain [Not Recovered/Not Resolved]
  - Rash [Recovering/Resolving]
  - Cough [Unknown]
  - Weight decreased [Unknown]
  - Vomiting [Unknown]
  - Nausea [Unknown]
  - Constipation [Not Recovered/Not Resolved]
